FAERS Safety Report 20985599 (Version 1)
Quarter: 2022Q2

REPORT INFORMATION
  Report Type: Spontaneous
  Country: US (occurrence: US)
  Receive Date: 20220621
  Receipt Date: 20220621
  Transmission Date: 20220720
  Serious: No
  Sender: FDA-Public Use
  Company Number: US-BAUSCH-BL-2022-014856

PATIENT
  Age: 58 Year
  Sex: Female

DRUGS (2)
  1. ALREX [Suspect]
     Active Substance: LOTEPREDNOL ETABONATE
     Indication: Hypersensitivity
     Route: 065
  2. TYRVAYA [Suspect]
     Active Substance: VARENICLINE TARTRATE
     Indication: Product used for unknown indication
     Route: 065
     Dates: start: 202205

REACTIONS (5)
  - Cough [Recovered/Resolved]
  - Nasal discomfort [Recovered/Resolved]
  - Drug interaction [Recovered/Resolved]
  - Instillation site erythema [Recovered/Resolved]
  - Ocular discomfort [Recovered/Resolved]

NARRATIVE: CASE EVENT DATE: 20220501
